FAERS Safety Report 18624892 (Version 14)
Quarter: 2025Q3

REPORT INFORMATION
  Report Type: Report from Study
  Country: US (occurrence: US)
  Receive Date: 20201216
  Receipt Date: 20250714
  Transmission Date: 20251021
  Serious: Yes (Other)
  Sender: TAKEDA
  Company Number: US-TAKEDA-2020TUS057027

PATIENT
  Age: 69 Year
  Sex: Female
  Weight: 69 kg

DRUGS (27)
  1. HUMAN IMMUNOGLOBULIN G\HYALURONIDASE RECOMBINANT HUMAN [Suspect]
     Active Substance: HUMAN IMMUNOGLOBULIN G\HYALURONIDASE (HUMAN RECOMBINANT)
     Indication: Immunodeficiency common variable
     Dosage: 30 GRAM, Q4WEEKS
  2. ACETAMINOPHEN [Concomitant]
     Active Substance: ACETAMINOPHEN
  3. SODIUM CHLORIDE [Concomitant]
     Active Substance: SODIUM CHLORIDE
  4. ATORVASTATIN CALCIUM [Concomitant]
     Active Substance: ATORVASTATIN CALCIUM
  5. LOSARTAN POTASSIUM [Concomitant]
     Active Substance: LOSARTAN POTASSIUM
  6. BREO ELLIPTA [Concomitant]
     Active Substance: FLUTICASONE FUROATE\VILANTEROL TRIFENATATE
  7. CEFDINIR [Concomitant]
     Active Substance: CEFDINIR
  8. METFORMIN HYDROCHLORIDE [Concomitant]
     Active Substance: METFORMIN HYDROCHLORIDE
  9. VITAMIN D3 [Concomitant]
     Active Substance: CHOLECALCIFEROL
  10. PREDNISONE [Concomitant]
     Active Substance: PREDNISONE
  11. ASPIRIN [Concomitant]
     Active Substance: ASPIRIN
  12. IPRATROPIUM BROMIDE [Concomitant]
     Active Substance: IPRATROPIUM BROMIDE
  13. Lmx [Concomitant]
  14. DIPHENHYDRAMINE HYDROCHLORIDE [Concomitant]
     Active Substance: DIPHENHYDRAMINE HYDROCHLORIDE
  15. FUROSEMIDE [Concomitant]
     Active Substance: FUROSEMIDE
  16. VITAMIN E [Concomitant]
     Active Substance: .ALPHA.-TOCOPHEROL
  17. IBUPROFEN [Concomitant]
     Active Substance: IBUPROFEN
  18. GLIPIZIDE [Concomitant]
     Active Substance: GLIPIZIDE
  19. MONTELUKAST SODIUM [Concomitant]
     Active Substance: MONTELUKAST SODIUM
  20. ZYRTEC [Concomitant]
     Active Substance: CETIRIZINE HYDROCHLORIDE
  21. MONTELUKAST [Concomitant]
     Active Substance: MONTELUKAST
  22. IPRATROPIUM [Concomitant]
     Active Substance: IPRATROPIUM
  23. DIPHENHYDRAMINE [Concomitant]
     Active Substance: DIPHENHYDRAMINE
  24. EPINEPHRINE [Concomitant]
     Active Substance: EPINEPHRINE
  25. ATORVASTATIN [Concomitant]
     Active Substance: ATORVASTATIN
  26. METFORMIN [Concomitant]
     Active Substance: METFORMIN HYDROCHLORIDE
  27. LOSARTAN [Concomitant]
     Active Substance: LOSARTAN

REACTIONS (13)
  - Colitis [Unknown]
  - Sinusitis [Recovered/Resolved]
  - Infusion related reaction [Unknown]
  - Device occlusion [Unknown]
  - Body temperature increased [Unknown]
  - Blood pressure abnormal [Unknown]
  - Procedural pain [Unknown]
  - Insurance issue [Unknown]
  - Product dose omission issue [Unknown]
  - Injection site haemorrhage [Unknown]
  - Blood glucose increased [Unknown]
  - Infusion site haemorrhage [Unknown]
  - Infusion site erythema [Unknown]

NARRATIVE: CASE EVENT DATE: 20210210
